FAERS Safety Report 26162885 (Version 1)
Quarter: 2025Q4

REPORT INFORMATION
  Report Type: Spontaneous
  Country: GB (occurrence: GB)
  Receive Date: 20251216
  Receipt Date: 20251216
  Transmission Date: 20260117
  Serious: Yes (Other)
  Sender: INSUD PHARMA
  Company Number: None

PATIENT
  Age: 77 Year
  Sex: Male
  Weight: 89 kg

DRUGS (20)
  1. LANSOPRAZOLE [Suspect]
     Active Substance: LANSOPRAZOLE
     Indication: Product used for unknown indication
     Dosage: TO PROTECT THE STOM...
     Route: 065
     Dates: start: 20250205, end: 20251208
  2. NYSTATIN [Concomitant]
     Active Substance: NYSTATIN
     Indication: Ill-defined disorder
     Dosage: 1MLQDS
     Route: 065
     Dates: start: 20251115
  3. PROCARBAZINE [Concomitant]
     Active Substance: PROCARBAZINE
     Indication: Ill-defined disorder
     Dosage: CHEMOTHRAPY
     Route: 065
     Dates: start: 20251115
  4. COCODAMOL [Concomitant]
     Active Substance: ACETAMINOPHEN\CODEINE PHOSPHATE
     Indication: Ill-defined disorder
     Dosage: 1-2 UP TO FOUR TIMES A DAY
     Route: 065
     Dates: start: 20241018
  5. BIMATOPROST [Concomitant]
     Active Substance: BIMATOPROST
     Indication: Ill-defined disorder
     Dosage: ONE DROP IN BOTH EYES AT NIGHT (THIS REPLACES T...
     Route: 047
     Dates: start: 20241216
  6. EDOXABAN TOSYLATE [Concomitant]
     Active Substance: EDOXABAN TOSYLATE
     Indication: Ill-defined disorder
     Dosage: ONE TO BE TAKEN EACH DAY **BLOOD THINNER** CARR...
     Route: 065
     Dates: start: 20241216
  7. SIMVASTATIN [Concomitant]
     Active Substance: SIMVASTATIN
     Indication: Ill-defined disorder
     Dosage: ONE TO BE TAKEN AT NIGHT
     Route: 065
     Dates: start: 20241216
  8. METFORMIN [Concomitant]
     Active Substance: METFORMIN HYDROCHLORIDE
     Indication: Ill-defined disorder
     Dosage: TAKE ONE DAILY
     Route: 065
     Dates: start: 20250312
  9. BISOPROLOL [Concomitant]
     Active Substance: BISOPROLOL
     Indication: Ill-defined disorder
     Dosage: TAKE ONE DAILY
     Route: 065
     Dates: start: 20250508
  10. CHLORPHENIRAMINE MALEATE [Concomitant]
     Active Substance: CHLORPHENIRAMINE MALEATE
     Indication: Ill-defined disorder
     Dosage: TAKE ONE FOUR TIMES A DAY
     Route: 065
     Dates: start: 20250508
  11. DIGOXIN [Concomitant]
     Active Substance: DIGOXIN
     Indication: Ill-defined disorder
     Dosage: TAKE ONE DAILY
     Route: 065
     Dates: start: 20250508
  12. ALLOPURINOL [Concomitant]
     Active Substance: ALLOPURINOL
     Indication: Ill-defined disorder
     Dosage: TAKE ONE DAILY
     Route: 065
     Dates: start: 20250620, end: 20251208
  13. FUROSEMIDE [Concomitant]
     Active Substance: FUROSEMIDE
     Indication: Ill-defined disorder
     Dosage: TAKE ONE EACH MORNING FOR LEG SWELLING - ONCE S...
     Route: 065
     Dates: start: 20250905
  14. ACYCLOVIR [Concomitant]
     Active Substance: ACYCLOVIR
     Indication: Ill-defined disorder
     Dosage: 1 TO BE TAKEN TWICE DAILY
     Route: 065
     Dates: start: 20251124
  15. GELCLAIR [HYALURONATE SODIUM;POVIDONE] [Concomitant]
     Indication: Ill-defined disorder
     Dosage: APPLY ONE SACHET TO MOUTH THREE TIMES A DAY
     Route: 065
     Dates: start: 20251124
  16. ONDANSETRON [Concomitant]
     Active Substance: ONDANSETRON
     Indication: Ill-defined disorder
     Dosage: TAKE ONE TWICE DAILY FOR NAUSEA/VOMITING WHEN N...
     Route: 065
     Dates: start: 20251124
  17. SODIUM BICARBONATE [Concomitant]
     Active Substance: SODIUM BICARBONATE
     Indication: Ill-defined disorder
     Dosage: THREE CAPSULES FOUR TIMES A DAY
     Route: 065
     Dates: start: 20251124, end: 20251208
  18. GLICLAZIDE [Concomitant]
     Active Substance: GLICLAZIDE
     Indication: Ill-defined disorder
     Dosage: 2 WITH BREAKFAST AND 2 WITH EVENING MEAL - MAXI...
     Route: 065
     Dates: start: 20251208
  19. FAMOTIDINE [Concomitant]
     Active Substance: FAMOTIDINE
     Indication: Ill-defined disorder
     Dosage: 1 TO BE TAKEN TWICE DAILY FOR STOMACH ACID OR S...
     Route: 065
     Dates: start: 20251209
  20. CALCIUM CARBONATE\CHOLECALCIFEROL [Concomitant]
     Active Substance: CALCIUM CARBONATE\CHOLECALCIFEROL
     Indication: Ill-defined disorder
     Dosage: TAKE ONE TWICE DAILY - THIS IS CALCIUM AND VITA...
     Route: 065
     Dates: start: 20251209

REACTIONS (1)
  - Chemotherapy toxicity attenuation [Recovered/Resolved]
